FAERS Safety Report 20610248 (Version 1)
Quarter: 2022Q1

REPORT INFORMATION
  Report Type: Spontaneous
  Country: US (occurrence: US)
  Receive Date: 20220318
  Receipt Date: 20220318
  Transmission Date: 20220423
  Serious: No
  Sender: FDA-Public Use
  Company Number: US-drreddys-SPO/USA/22/0147671

PATIENT
  Age: 17 Year

DRUGS (2)
  1. ZENATANE [Suspect]
     Active Substance: ISOTRETINOIN
     Indication: Product used for unknown indication
     Dosage: RMA ISSUE DATE: 03 DECEMBER 2021 11:14:38 AM, 10 JANUARY 2022 12:29:32 PM, 07 FEBRUARY 2022 05:20:35
  2. ZENATANE [Suspect]
     Active Substance: ISOTRETINOIN
     Dosage: RMA ISSUE DATE: 29 OCTOBER 2021 05:50:41 PM

REACTIONS (1)
  - Hepatic enzyme increased [Unknown]
